FAERS Safety Report 5489883-4 (Version None)
Quarter: 2007Q4

REPORT INFORMATION
  Report Type: 
  Country: None (occurrence: None)
  Receive Date: 20071018
  Receipt Date: 20071012
  Transmission Date: 20080405
  Serious: Yes (Death)
  Sender: FDA-Public Use
  Company Number: PL-JNJFOC-20070904192

PATIENT
  Sex: Female

DRUGS (6)
  1. TOPAMAX [Suspect]
  2. TOPAMAX [Suspect]
  3. TOPAMAX [Suspect]
     Indication: BIPOLAR DISORDER
  4. ANTIDEPRESSANT [Concomitant]
     Indication: DEPRESSION
  5. LAMOTRIGINUM [Concomitant]
     Dosage: 1 IN AM; 2 AT NIGHT
  6. MOCLOBEMIDE [Concomitant]
     Dosage: 2 IN AM; 1 AT NOON

REACTIONS (2)
  - COMPLETED SUICIDE [None]
  - OFF LABEL USE [None]
